FAERS Safety Report 6699265-5 (Version None)
Quarter: 2010Q2

REPORT INFORMATION
  Report Type: 
  Country: None (occurrence: None)
  Receive Date: 20100427
  Receipt Date: 20100413
  Transmission Date: 20101027
  Serious: Yes (Death, Hospitalization)
  Sender: FDA-Public Use
  Company Number: US-ELI_LILLY_AND_COMPANY-US201004003639

PATIENT
  Sex: Male

DRUGS (9)
  1. FORTEO [Suspect]
     Indication: OSTEOPOROSIS
     Dosage: 20 UG, DAILY (1/D)
     Dates: start: 20090501, end: 20100301
  2. WARFARIN SODIUM [Concomitant]
     Dosage: 5 MG, UNKNOWN
  3. ARICEPT [Concomitant]
     Dosage: 10 MG, UNKNOWN
  4. LEVOTHYROXINE [Concomitant]
     Dosage: 75 UG, UNKNOWN
  5. NAMENDA [Concomitant]
     Dosage: 10 MG, UNKNOWN
  6. MULTI-VITAMIN [Concomitant]
  7. METOPROLOL [Concomitant]
  8. DULCOLAX [Concomitant]
  9. VITAMIN D [Concomitant]

REACTIONS (4)
  - BACK PAIN [None]
  - DIZZINESS [None]
  - EPISTAXIS [None]
  - RENAL FAILURE ACUTE [None]
